FAERS Safety Report 19072693 (Version 1)
Quarter: 2021Q1

REPORT INFORMATION
  Report Type: Spontaneous
  Country: US (occurrence: US)
  Receive Date: 20210330
  Receipt Date: 20210330
  Transmission Date: 20210420
  Serious: No
  Sender: FDA-Public Use
  Company Number: None

PATIENT
  Age: 29 Year
  Sex: Female
  Weight: 105.75 kg

DRUGS (13)
  1. NAPROXEN. [Concomitant]
     Active Substance: NAPROXEN
  2. ZOFRAN [Concomitant]
     Active Substance: ONDANSETRON HYDROCHLORIDE
  3. OMEPRAZOLE. [Concomitant]
     Active Substance: OMEPRAZOLE
  4. EMGALITY [Suspect]
     Active Substance: GALCANEZUMAB-GNLM
     Indication: MIGRAINE
     Dosage: ? QUANTITY:1 INJECTION(S);?OTHER FREQUENCY:ONCE A MONTH;?
     Route: 058
     Dates: start: 20210130, end: 20210301
  5. CITALOPRAM [Concomitant]
     Active Substance: CITALOPRAM HYDROBROMIDE
  6. VIT D [Concomitant]
     Active Substance: VITAMIN D NOS
  7. MAXALT [Concomitant]
     Active Substance: RIZATRIPTAN BENZOATE
  8. RIBOFLAVIN [Concomitant]
     Active Substance: RIBOFLAVIN
  9. FOLIC ACID. [Concomitant]
     Active Substance: FOLIC ACID
  10. CALCIUM [Concomitant]
     Active Substance: CALCIUM
  11. MAGNESIUM [Concomitant]
     Active Substance: MAGNESIUM
  12. LISINOPRIL. [Concomitant]
     Active Substance: LISINOPRIL
  13. HYDROXYZINE [Concomitant]
     Active Substance: HYDROXYZINE HYDROCHLORIDE

REACTIONS (10)
  - Flushing [None]
  - Dyspnoea [None]
  - Anxiety [None]
  - Fatigue [None]
  - Stress [None]
  - Diarrhoea [None]
  - Chest discomfort [None]
  - Aspartate aminotransferase increased [None]
  - Blood pressure increased [None]
  - White blood cell count increased [None]

NARRATIVE: CASE EVENT DATE: 20210323
